FAERS Safety Report 8709440 (Version 4)
Quarter: 2015Q1

REPORT INFORMATION
  Report Type: Spontaneous
  Country: US (occurrence: None)
  Receive Date: 20120720
  Receipt Date: 20150327
  Transmission Date: 20150721
  Serious: Yes (Hospitalization, Other)
  Sender: FDA-Public Use
  Company Number: ADR-2012-01303

PATIENT
  Age: 42 Year
  Sex: Female

DRUGS (1)
  1. COMPOUNDED BACLOFEN [Suspect]
     Active Substance: BACLOFEN
     Indication: MUSCLE SPASTICITY

REACTIONS (7)
  - Drug tolerance [None]
  - Panic attack [None]
  - Muscle tightness [None]
  - Movement disorder [None]
  - Drug intolerance [None]
  - Vomiting projectile [None]
  - Musculoskeletal stiffness [None]
